FAERS Safety Report 5492866-1 (Version None)
Quarter: 2007Q4

REPORT INFORMATION
  Report Type: 
  Country: None (occurrence: None)
  Receive Date: 20071023
  Receipt Date: 20070607
  Transmission Date: 20080405
  Serious: No
  Sender: FDA-Public Use
  Company Number: US-BRISTOL-MYERS SQUIBB COMPANY-13807458

PATIENT
  Sex: Male
  Weight: 102 kg

DRUGS (6)
  1. BUSPAR [Suspect]
     Indication: ANXIETY
     Dates: start: 20070101
  2. LISINOPRIL [Concomitant]
  3. METOPROLOL [Concomitant]
  4. NORVASC [Concomitant]
  5. GLUCOVANCE [Concomitant]
  6. AVANDIA [Concomitant]

REACTIONS (1)
  - PARKINSONISM [None]
